FAERS Safety Report 5050693-3 (Version None)
Quarter: 2006Q3

REPORT INFORMATION
  Report Type: 
  Country: None (occurrence: None)
  Receive Date: 20060710
  Receipt Date: 20060629
  Transmission Date: 20061208
  Serious: Yes (Hospitalization)
  Sender: FDA-Public Use
  Company Number: 2006082186

PATIENT
  Age: 92 Year
  Sex: Male

DRUGS (7)
  1. SPIRONOLACTONE [Suspect]
     Indication: MYOCARDIAL ISCHAEMIA
     Dosage: 25 MG (25 MG, DAILY), ORAL
     Route: 048
     Dates: start: 20060523, end: 20060523
  2. PERINDOPRIL ERBUMINE [Suspect]
     Indication: MYOCARDIAL ISCHAEMIA
     Dosage: 2 MG (2 MG, DAILY), ORAL
     Route: 048
     Dates: start: 20060523, end: 20060523
  3. ALLOPURINOL [Concomitant]
  4. FLUOXETINE [Concomitant]
  5. FUROSEMIDE [Concomitant]
  6. ISOSORBIDE MONONITRATE [Concomitant]
  7. MULTIVITAMIN [Concomitant]

REACTIONS (2)
  - BLOOD CREATINE INCREASED [None]
  - HYPERKALAEMIA [None]
